FAERS Safety Report 11555165 (Version 1)
Quarter: 2015Q3

REPORT INFORMATION
  Report Type: Spontaneous
  Country: US (occurrence: US)
  Receive Date: 20150903
  Receipt Date: 20150903
  Transmission Date: 20151125
  Serious: No
  Sender: FDA-Public Use
  Company Number: US-ELI_LILLY_AND_COMPANY-US201010002763

PATIENT
  Sex: Female

DRUGS (2)
  1. HUMALOG [Suspect]
     Active Substance: INSULIN LISPRO
     Indication: DIABETES MELLITUS
     Dosage: 19 U, DAILY (1/D)
     Dates: start: 2000
  2. LANTUS [Concomitant]
     Active Substance: INSULIN GLARGINE
     Dosage: 7 U, 2/D

REACTIONS (1)
  - Wrong technique in product usage process [Unknown]
